FAERS Safety Report 5909041-6 (Version None)
Quarter: 2008Q4

REPORT INFORMATION
  Report Type: 
  Country: None (occurrence: None)
  Receive Date: 20081006
  Receipt Date: 20080926
  Transmission Date: 20090506
  Serious: Yes (Other)
  Sender: FDA-Public Use
  Company Number: JO-PURDUE-USA_2008_0035241

PATIENT
  Sex: Female

DRUGS (1)
  1. MORPHINE SULFATE [Suspect]
     Indication: PAIN MANAGEMENT

REACTIONS (2)
  - HYDRONEPHROSIS [None]
  - RENAL IMPAIRMENT NEONATAL [None]
